FAERS Safety Report 10426437 (Version 2)
Quarter: 2014Q3

REPORT INFORMATION
  Report Type: Spontaneous
  Country: US (occurrence: US)
  Receive Date: 20140903
  Receipt Date: 20140922
  Transmission Date: 20150326
  Serious: No
  Sender: FDA-Public Use
  Company Number: US-PFIZER INC-2014245461

PATIENT
  Age: 58 Year
  Sex: Male
  Weight: 98.41 kg

DRUGS (2)
  1. LYRICA [Suspect]
     Active Substance: PREGABALIN
     Indication: PAIN IN EXTREMITY
     Dosage: 100 MG, 3X/DAY (EVERY 8 HOURS)
     Dates: start: 2012, end: 2014
  2. LYRICA [Suspect]
     Active Substance: PREGABALIN
     Indication: FIBROMYALGIA

REACTIONS (7)
  - Vomiting [Unknown]
  - Pain [Unknown]
  - Nasopharyngitis [Unknown]
  - Pain in extremity [Unknown]
  - Chills [Unknown]
  - Anxiety [Unknown]
  - Headache [Unknown]

NARRATIVE: CASE EVENT DATE: 201408
